FAERS Safety Report 7775178-2 (Version None)
Quarter: 2011Q3

REPORT INFORMATION
  Report Type: 
  Country: None (occurrence: None)
  Receive Date: 20110923
  Receipt Date: 20110920
  Transmission Date: 20111222
  Serious: Yes (Other)
  Sender: FDA-Public Use
  Company Number: PL-BRISTOL-MYERS SQUIBB COMPANY-16046153

PATIENT
  Age: 47 Year
  Sex: Female

DRUGS (4)
  1. METHOTREXATE [Suspect]
     Dates: start: 20050323
  2. FEBROFEN [Concomitant]
     Dates: start: 20040806
  3. METHYLPREDNISOLONE [Concomitant]
     Dates: start: 20041129
  4. ABATACEPT [Suspect]
     Indication: RHEUMATOID ARTHRITIS
     Route: 058
     Dates: start: 20090813

REACTIONS (1)
  - IRON DEFICIENCY ANAEMIA [None]
